FAERS Safety Report 6532197-1 (Version None)
Quarter: 2010Q1

REPORT INFORMATION
  Report Type: 
  Country: None (occurrence: None)
  Receive Date: 20100108
  Receipt Date: 20091230
  Transmission Date: 20100710
  Serious: Yes (Hospitalization)
  Sender: FDA-Public Use
  Company Number: US-JNJFOC-20100100183

PATIENT
  Age: 74 Year
  Sex: Female
  Weight: 58.97 kg

DRUGS (5)
  1. TYLENOL (CAPLET) [Suspect]
     Route: 048
  2. TYLENOL (CAPLET) [Suspect]
     Indication: ARTHRITIS
     Dosage: DOES NOT TAKE MORE THAN 4 DOSES OF 650MG PER DAY
     Route: 048
  3. EXTRA STRENGTH TYLENOL PM [Concomitant]
     Indication: PAIN
     Route: 048
  4. EXTRA STRENGTH TYLENOL PM [Concomitant]
     Indication: INSOMNIA
     Route: 048
  5. LIPITOR [Concomitant]
     Indication: BLOOD CHOLESTEROL INCREASED
     Route: 048

REACTIONS (2)
  - HOSPITALISATION [None]
  - PRODUCT QUALITY ISSUE [None]
